FAERS Safety Report 9564001 (Version 2)
Quarter: 2013Q4

REPORT INFORMATION
  Report Type: Spontaneous
  Country: US (occurrence: US)
  Receive Date: 20130928
  Receipt Date: 20131009
  Transmission Date: 20140711
  Serious: Yes (Life-Threatening, Hospitalization, Disabling, Other)
  Sender: FDA-Public Use
  Company Number: US-MERCK-1309USA012435

PATIENT
  Age: 58 Year
  Sex: Female

DRUGS (7)
  1. JANUVIA [Suspect]
     Indication: TYPE 2 DIABETES MELLITUS
     Dosage: 100 MG, QD
     Route: 048
     Dates: start: 20130313, end: 20130320
  2. INSULIN [Concomitant]
  3. GLYBURIDE [Concomitant]
  4. METFORMIN [Concomitant]
  5. ENALAPRIL MALEATE [Concomitant]
  6. SIMVASTATIN [Concomitant]
  7. ASPIRIN [Concomitant]

REACTIONS (5)
  - Throat tightness [Recovered/Resolved]
  - Cholecystectomy [Unknown]
  - Pancreatitis [Recovered/Resolved]
  - Cholelithiasis [Recovered/Resolved]
  - Cholelithotomy [Recovered/Resolved]
